FAERS Safety Report 13408259 (Version 2)
Quarter: 2017Q2

REPORT INFORMATION
  Report Type: Spontaneous
  Country: DE (occurrence: DE)
  Receive Date: 20170406
  Receipt Date: 20170420
  Transmission Date: 20170830
  Serious: Yes (Other)
  Sender: FDA-Public Use
  Company Number: DE-SUN PHARMACEUTICAL INDUSTRIES LTD-2017RR-137419

PATIENT
  Sex: Female
  Weight: 69 kg

DRUGS (1)
  1. CIPRO [Suspect]
     Active Substance: CIPROFLOXACIN HYDROCHLORIDE
     Indication: NEPHRITIS
     Dosage: 250 MG, BID
     Route: 048

REACTIONS (6)
  - Dizziness [Unknown]
  - Nausea [Recovered/Resolved]
  - Headache [Unknown]
  - Tinnitus [Unknown]
  - Tinnitus [Recovering/Resolving]
  - Sleep disorder [Unknown]

NARRATIVE: CASE EVENT DATE: 201703
